FAERS Safety Report 20535803 (Version 1)
Quarter: 2022Q1

REPORT INFORMATION
  Report Type: Spontaneous
  Country: US (occurrence: US)
  Receive Date: 20220302
  Receipt Date: 20220302
  Transmission Date: 20220423
  Serious: Yes (Other)
  Sender: FDA-Public Use
  Company Number: US-JNJFOC-20211058948

PATIENT
  Sex: Male

DRUGS (1)
  1. XARELTO [Suspect]
     Active Substance: RIVAROXABAN
     Indication: Atrial flutter
     Route: 048
     Dates: start: 2020

REACTIONS (3)
  - Gastrointestinal candidiasis [Unknown]
  - Off label use [Unknown]
  - Product use in unapproved indication [Unknown]
